FAERS Safety Report 4682072-2 (Version None)
Quarter: 2005Q2

REPORT INFORMATION
  Report Type: 
  Country: None (occurrence: None)
  Receive Date: 20050602
  Receipt Date: 20041108
  Transmission Date: 20051028
  Serious: Yes (Hospitalization)
  Sender: FDA-Public Use
  Company Number: 2004US001123

PATIENT
  Age: 55 Year
  Sex: Female

DRUGS (13)
  1. PROGRAF [Suspect]
     Indication: RENAL AND LIVER TRANSPLANT
     Dosage: 4.50 MG, BID, ORAL
     Route: 048
  2. PREDNISONE TAB [Concomitant]
  3. CELLCEPT [Concomitant]
  4. VALGANCICLOVIR [Concomitant]
  5. TRIMETOPRIM-SULFA (SULFAMETHOXAZOLE, TRIMETHOPRIM) [Concomitant]
  6. PANTOPRAZOLE (PANTOPRAZOLE) TABLET [Concomitant]
  7. COLACE (DOCUSATE SODIUM) [Concomitant]
  8. MULTIVITAMINS (ERGOCALCIFEROL, ASCORBIC ACID, PANTHENOL, NICOTINAMIDE, [Concomitant]
  9. FOLIC ACID [Concomitant]
  10. FERROUS SULFATE [Concomitant]
  11. MYCELEX [Concomitant]
  12. LASIX [Concomitant]
  13. TYLENOL WITH CODEINE TABLET [Concomitant]

REACTIONS (2)
  - DRUG LEVEL INCREASED [None]
  - MYALGIA [None]
